FAERS Safety Report 8643725 (Version 2)
Quarter: 2012Q4

REPORT INFORMATION
  Report Type: Report from Study
  Country: ES (occurrence: ES)
  Receive Date: 20120629
  Receipt Date: 20121211
  Transmission Date: 20130627
  Serious: Yes (Hospitalization)
  Sender: FDA-Public Use
  Company Number: ES-GLAXOSMITHKLINE-Z0016038A

PATIENT
  Age: 65 Year
  Sex: Female
  Weight: 49 kg

DRUGS (23)
  1. OFATUMUMAB [Suspect]
     Indication: DIFFUSE LARGE B-CELL LYMPHOMA RECURRENT
     Dosage: 1000MG Cyclic
     Route: 042
     Dates: start: 20120327
  2. DEXAMETHASONE [Suspect]
     Indication: DIFFUSE LARGE B-CELL LYMPHOMA RECURRENT
     Dosage: 40MG Every 3 weeks
     Route: 048
     Dates: start: 20120328
  3. CISPLATIN [Suspect]
     Indication: DIFFUSE LARGE B-CELL LYMPHOMA RECURRENT
     Dosage: 100MGM2 Every 3 weeks
     Route: 042
     Dates: start: 20120328
  4. CYTARABINE [Suspect]
     Indication: DIFFUSE LARGE B-CELL LYMPHOMA RECURRENT
     Dosage: 4GM2 Every 3 weeks
     Route: 042
     Dates: start: 20120329
  5. TRAMADOL [Concomitant]
     Indication: ANALGESIC THERAPY
     Dosage: 50MG Three times per day
     Route: 048
     Dates: start: 20120307, end: 20120401
  6. PREGABALIN [Concomitant]
     Indication: ANALGESIC THERAPY
     Dosage: 75MG Three times per day
     Route: 048
     Dates: start: 20120322, end: 20120401
  7. PREGABALIN [Concomitant]
     Indication: ANALGESIC THERAPY
     Dosage: 300MG Per day
     Route: 048
     Dates: start: 20120402, end: 20120404
  8. PEGFILGRASTIM [Concomitant]
     Indication: PROPHYLAXIS
     Dosage: 6MG Single dose
     Route: 058
     Dates: start: 20120401, end: 20120401
  9. FUROSEMIDE [Concomitant]
     Indication: DIURETIC THERAPY
     Dosage: 20MG Twice per day
     Route: 042
     Dates: start: 20120327, end: 20120330
  10. METOCLOPRAMIDE [Concomitant]
     Indication: VOMITING
     Dosage: 10MG Three times per day
     Route: 042
     Dates: start: 20120320, end: 20120813
  11. ONDANSETRON [Concomitant]
     Indication: VOMITING
     Dosage: 8MG Three times per day
     Route: 042
     Dates: start: 20120327, end: 20120410
  12. SULFAMETHOXAZOLE + TRIMETHOPRIM [Concomitant]
     Indication: ANTIFUNGAL PROPHYLAXIS
     Dosage: 800MG Four times per week
     Route: 048
     Dates: start: 20120327, end: 20120404
  13. FOLIC ACID [Concomitant]
     Dosage: 5MG Three times per week
     Route: 048
     Dates: start: 20120307, end: 20121024
  14. OMEPRAZOL [Concomitant]
     Indication: PRODUCT USED FOR UNKNOWN INDICATION
     Dosage: 20MG Twice per day
     Route: 048
     Dates: start: 20120307
  15. CALCIUM CARBONATE + CHOLECALCIFEROL [Concomitant]
     Indication: OSTEOPOROSIS
     Dosage: 500MG Per day
     Route: 048
     Dates: start: 20120307
  16. LORAZEPAM [Concomitant]
     Indication: SLEEP DISORDER
     Dosage: 1MG At night
     Route: 048
     Dates: start: 20120327, end: 20120404
  17. CHLORPROMAZINE HYDROCHLORIDE [Concomitant]
     Indication: VOMITING
     Dosage: 8.5MG Per day
     Route: 042
     Dates: start: 20120330, end: 20120404
  18. CIPROFLOXACIN [Concomitant]
     Indication: PYREXIA
     Dosage: 400MG Twice per day
     Route: 042
     Dates: start: 20120330, end: 20120404
  19. CEFTAZIDIME [Concomitant]
     Indication: PROPHYLAXIS
     Dosage: 2G Three times per day
     Route: 042
     Dates: start: 20120404, end: 20120407
  20. METAMIZOL [Concomitant]
     Indication: ANALGESIC THERAPY
     Dosage: 2G Four times per day
     Route: 042
     Dates: start: 20120406, end: 20120412
  21. PARACETAMOL [Concomitant]
     Indication: ANALGESIC THERAPY
     Dosage: 1G Four times per day
     Route: 042
     Dates: start: 20120327, end: 20120413
  22. METHYLPREDNISOLONE [Concomitant]
     Indication: ANALGESIC THERAPY
     Dosage: 30MG Per day
     Route: 042
     Dates: start: 20120409, end: 20120413
  23. LINEZOLID [Concomitant]
     Indication: ENTEROCOCCAL BACTERAEMIA
     Dosage: 600MG Twice per day
     Route: 042
     Dates: start: 20120407, end: 20120413

REACTIONS (3)
  - Vomiting [Recovered/Resolved]
  - Decreased appetite [Recovered/Resolved]
  - Fatigue [Recovered/Resolved]
